FAERS Safety Report 4176924 (Version 5)
Quarter: 2015Q3

REPORT INFORMATION
  Report Type: Spontaneous
  Country: JP (occurrence: JP)
  Receive Date: 20040727
  Receipt Date: 20150807
  Transmission Date: 20151125
  Serious: Yes (Life-Threatening, Other)
  Sender: FDA-Public Use
  Company Number: PHBS2004JP09791

PATIENT
  Age: 0 Day
  Sex: Female
  Weight: 1.75 kg

DRUGS (1)
  1. DIOVAN [Suspect]
     Active Substance: VALSARTAN
     Indication: FOETAL EXPOSURE DURING PREGNANCY
     Route: 064

REACTIONS (14)
  - Chest X-ray abnormal [Unknown]
  - Skull malformation [Recovering/Resolving]
  - Congenital cutis laxa [Recovered/Resolved]
  - Skin disorder [Recovering/Resolving]
  - Neonatal respiratory distress syndrome [Recovered/Resolved]
  - Congenital pulmonary hypertension [Unknown]
  - Anuria [Recovered/Resolved]
  - Hypotension [Recovered/Resolved]
  - Diaphragmatic disorder [Unknown]
  - Pneumomediastinum [Unknown]
  - PO2 decreased [Recovering/Resolving]
  - Maternal exposure during pregnancy [Unknown]
  - Neonatal asphyxia [Recovering/Resolving]
  - Acute kidney injury [Unknown]

NARRATIVE: CASE EVENT DATE: 20040711
